FAERS Safety Report 18037572 (Version 1)
Quarter: 2020Q3

REPORT INFORMATION
  Report Type: Spontaneous
  Country: US (occurrence: US)
  Receive Date: 20200717
  Receipt Date: 20200717
  Transmission Date: 20201103
  Serious: Yes (Life-Threatening, Hospitalization)
  Sender: FDA-Public Use
  Company Number: US-MYLANLABS-2020M1064069

PATIENT
  Age: 6 Year
  Sex: Female

DRUGS (15)
  1. LEVETIRACETAM. [Suspect]
     Active Substance: LEVETIRACETAM
     Indication: STATUS EPILEPTICUS
     Route: 065
  2. TOPIRAMATE. [Suspect]
     Active Substance: TOPIRAMATE
     Indication: STATUS EPILEPTICUS
     Route: 065
  3. CLONAZEPAM MYLAN [Suspect]
     Active Substance: CLONAZEPAM
     Indication: STATUS EPILEPTICUS
     Route: 065
  4. VALPROIC ACID MYLAN [Suspect]
     Active Substance: VALPROIC ACID
     Indication: STATUS EPILEPTICUS
     Route: 065
  5. MIDAZOLAM. [Suspect]
     Active Substance: MIDAZOLAM
     Dosage: DOSE: 1.5MG/KG/H (SUBSEQUENT PRESENTATION 7 MONTHS LATER)
     Route: 042
  6. DIAZEPAM TABLETS USP [Suspect]
     Active Substance: DIAZEPAM
     Indication: STATUS EPILEPTICUS
     Dosage: ADMINISTERED DURING INITIAL AND SUBSEQUENT ADMISSION
     Route: 054
  7. LORAZEPAM. [Suspect]
     Active Substance: LORAZEPAM
     Dosage: SEVERAL DOSES ADMINISTERED (SUBSEQUENT ADMISSION 7 MONTHS LATER)
     Route: 042
  8. FOSPHENYTOIN [Suspect]
     Active Substance: FOSPHENYTOIN
     Indication: STATUS EPILEPTICUS
     Route: 065
  9. PENTOBARBITAL. [Concomitant]
     Active Substance: PENTOBARBITAL
     Indication: COMA
     Route: 042
  10. METHADONE [Concomitant]
     Active Substance: METHADONE HYDROCHLORIDE
     Indication: PRODUCT USED FOR UNKNOWN INDICATION
     Route: 042
  11. CLONIDINE. [Concomitant]
     Active Substance: CLONIDINE
     Indication: PRODUCT USED FOR UNKNOWN INDICATION
     Route: 042
  12. MIDAZOLAM. [Suspect]
     Active Substance: MIDAZOLAM
     Indication: STATUS EPILEPTICUS
     Route: 042
  13. DEXMEDETOMIDINE. [Suspect]
     Active Substance: DEXMEDETOMIDINE
     Indication: STATUS EPILEPTICUS
     Route: 042
  14. OXCARBAZEPINE. [Suspect]
     Active Substance: OXCARBAZEPINE
     Indication: STATUS EPILEPTICUS
     Route: 065
  15. LORAZEPAM. [Suspect]
     Active Substance: LORAZEPAM
     Indication: STATUS EPILEPTICUS
     Dosage: UNK
     Route: 042

REACTIONS (1)
  - Drug ineffective [Unknown]
